FAERS Safety Report 8030357-4 (Version None)
Quarter: 2012Q1

REPORT INFORMATION
  Report Type: 
  Country: None (occurrence: None)
  Receive Date: 20120109
  Receipt Date: 20120109
  Transmission Date: 20120608
  Serious: Yes (Other)
  Sender: FDA-Public Use
  Company Number: None

PATIENT
  Age: 57 Year
  Sex: Male
  Weight: 104.32 kg

DRUGS (2)
  1. MORPHINE SULFATE [Suspect]
     Indication: ARTHRITIS
     Dosage: 1 60 MG
     Route: 048
     Dates: start: 20111117, end: 20120117
  2. MORPHINE SULFATE [Suspect]
     Indication: INTERVERTEBRAL DISC DEGENERATION
     Dosage: 1 60 MG
     Route: 048
     Dates: start: 20111117, end: 20120117

REACTIONS (3)
  - ABDOMINAL DISCOMFORT [None]
  - DRUG INEFFECTIVE [None]
  - PRODUCT SUBSTITUTION ISSUE [None]
